FAERS Safety Report 6075265-3 (Version None)
Quarter: 2009Q1

REPORT INFORMATION
  Report Type: 
  Country: None (occurrence: None)
  Receive Date: 20090212
  Receipt Date: 20090204
  Transmission Date: 20090719
  Serious: Yes (Hospitalization)
  Sender: FDA-Public Use
  Company Number: PHHY2008MX26022

PATIENT
  Sex: Male

DRUGS (1)
  1. STALEVO 100 [Suspect]
     Indication: PARKINSON'S DISEASE
     Dosage: 2 TABS (200/100/25 MG )/DAY
     Route: 048
     Dates: start: 20071101

REACTIONS (3)
  - CHOLELITHIASIS [None]
  - EXPLORATIVE LAPAROTOMY [None]
  - GALLBLADDER PAIN [None]
